FAERS Safety Report 4848396-0 (Version None)
Quarter: 2005Q4

REPORT INFORMATION
  Report Type: 
  Country: None (occurrence: None)
  Receive Date: 20051208
  Receipt Date: 20051129
  Transmission Date: 20060501
  Serious: Yes (Death)
  Sender: FDA-Public Use
  Company Number: ID-ROCHE-426337

PATIENT
  Age: 50 Year
  Sex: Male
  Weight: 60 kg

DRUGS (1)
  1. PEGASYS [Suspect]
     Route: 042
     Dates: start: 20050715, end: 20051115

REACTIONS (1)
  - HAEMATEMESIS [None]
